FAERS Safety Report 21329037 (Version 1)
Quarter: 2022Q3

REPORT INFORMATION
  Report Type: Spontaneous
  Country: US (occurrence: None)
  Receive Date: 20220912
  Receipt Date: 20220912
  Transmission Date: 20221027
  Serious: No
  Sender: FDA-Public Use
  Company Number: None

PATIENT
  Age: 53 Year
  Sex: Female

DRUGS (1)
  1. EUCRISA [Suspect]
     Active Substance: CRISABOROLE
     Indication: Eczema
     Dosage: OTHER QUANTITY : 1 TUBE;?FREQUENCY : AS NEEDED;?
     Route: 061
     Dates: start: 20220911, end: 20220911

REACTIONS (4)
  - Burning sensation [None]
  - Pain [None]
  - Erythema [None]
  - Screaming [None]

NARRATIVE: CASE EVENT DATE: 20220911
